FAERS Safety Report 8274557 (Version 2)
Quarter: 2017Q1

REPORT INFORMATION
  Report Type: Spontaneous
  Country: PT (occurrence: PT)
  Receive Date: 20111205
  Receipt Date: 20170313
  Transmission Date: 20170429
  Serious: No
  Sender: FDA-Public Use
  Company Number: PT-PFIZER INC-2011291905

PATIENT
  Sex: Female

DRUGS (2)
  1. MIFEGYNE [Suspect]
     Active Substance: MIFEPRISTONE
     Indication: ABORTION INDUCED
     Dosage: 200 MG, UNK
     Route: 065
  2. CYTOTEC [Suspect]
     Active Substance: MISOPROSTOL
     Indication: ABORTION INDUCED
     Dosage: 200 UG, UNK
     Route: 065

REACTIONS (1)
  - Drug ineffective for unapproved indication [Unknown]
